FAERS Safety Report 9399648 (Version 1)
Quarter: 2013Q3

REPORT INFORMATION
  Report Type: Spontaneous
  Country: US (occurrence: US)
  Receive Date: 20130715
  Receipt Date: 20130715
  Transmission Date: 20140515
  Serious: No
  Sender: FDA-Public Use
  Company Number: US-BIOGENIDEC-2013BI063536

PATIENT
  Sex: 0

DRUGS (1)
  1. TYSABRI [Suspect]
     Indication: MULTIPLE SCLEROSIS
     Route: 042

REACTIONS (4)
  - Adverse drug reaction [Unknown]
  - Muscle disorder [Unknown]
  - Aphagia [Unknown]
  - Speech disorder [Unknown]
